FAERS Safety Report 18112978 (Version 1)
Quarter: 2020Q3

REPORT INFORMATION
  Report Type: Spontaneous
  Country: JP (occurrence: JP)
  Receive Date: 20200805
  Receipt Date: 20200805
  Transmission Date: 20201103
  Serious: Yes (Life-Threatening, Hospitalization, Disabling, Other)
  Sender: FDA-Public Use
  Company Number: JP-STRIDES ARCOLAB LIMITED-2020SP008786

PATIENT
  Age: 63 Year
  Sex: Male

DRUGS (3)
  1. TACROLIMUS. [Suspect]
     Active Substance: TACROLIMUS
     Dosage: 0.1 MILLIGRAM, PER DAY.
     Route: 065
  2. PREDNISOLONE. [Suspect]
     Active Substance: PREDNISOLONE
     Indication: ALLOGENIC STEM CELL TRANSPLANTATION
     Dosage: 2 MILLIGRAM, PER DAY
     Route: 065
  3. TACROLIMUS. [Suspect]
     Active Substance: TACROLIMUS
     Indication: ALLOGENIC STEM CELL TRANSPLANTATION
     Dosage: 0.2 MILLIGRAM PER DAY
     Route: 065

REACTIONS (11)
  - Status epilepticus [Recovered/Resolved]
  - Inflammation [Recovered/Resolved]
  - Epstein-Barr virus infection reactivation [Recovered/Resolved]
  - Depressed level of consciousness [Recovered/Resolved]
  - Cerebral hyperperfusion syndrome [Recovered/Resolved]
  - Pyrexia [Unknown]
  - Encephalopathy [Recovered/Resolved]
  - Off label use [Unknown]
  - Gait inability [Recovered/Resolved]
  - Aphasia [Unknown]
  - Malaise [Unknown]
